FAERS Safety Report 25724726 (Version 1)
Quarter: 2025Q3

REPORT INFORMATION
  Report Type: Spontaneous
  Country: CA (occurrence: CA)
  Receive Date: 20250826
  Receipt Date: 20250826
  Transmission Date: 20251021
  Serious: Yes (Disabling, Other)
  Sender: GLAXOSMITHKLINE
  Company Number: CA-GSK-CA2025AMR104892

PATIENT
  Age: 51 Year
  Sex: Female

DRUGS (18)
  1. ALBUTEROL [Suspect]
     Active Substance: ALBUTEROL
     Indication: Product used for unknown indication
  2. INFLUENZA VIRUS VACCINE [Suspect]
     Active Substance: INFLUENZA VIRUS VACCINE
     Indication: Prophylaxis
     Dosage: 2 DF, BID
  3. ALENDRONATE SODIUM [Suspect]
     Active Substance: ALENDRONATE SODIUM
     Indication: Product used for unknown indication
     Dosage: 70 MG, WE
  4. AZATHIOPRINE SODIUM [Suspect]
     Active Substance: AZATHIOPRINE SODIUM
     Indication: Product used for unknown indication
     Dosage: 200 MG, QD
  5. BUDESONIDE\FORMOTEROL [Suspect]
     Active Substance: BUDESONIDE\FORMOTEROL
     Indication: Product used for unknown indication
     Dosage: 2 DF, BID
  6. BUDESONIDE\FORMOTEROL FUMARATE [Suspect]
     Active Substance: BUDESONIDE\FORMOTEROL FUMARATE
     Indication: Product used for unknown indication
  7. CYMBALTA [Suspect]
     Active Substance: DULOXETINE HYDROCHLORIDE
     Indication: Product used for unknown indication
     Dosage: 20 MG, QD
  8. HYDROXYCHLOROQUINE SULFATE [Suspect]
     Active Substance: HYDROXYCHLOROQUINE SULFATE
     Indication: Product used for unknown indication
     Dosage: 400 MG, QD
  9. LANREOTIDE ACETATE [Suspect]
     Active Substance: LANREOTIDE ACETATE
     Indication: Product used for unknown indication
  10. LYRICA [Suspect]
     Active Substance: PREGABALIN
     Indication: Product used for unknown indication
     Dosage: 150 MG, BID
  11. PLAQUENIL [Suspect]
     Active Substance: HYDROXYCHLOROQUINE SULFATE
     Indication: Product used for unknown indication
     Dosage: 400 MG, QD
  12. PREDNISONE ACETATE [Suspect]
     Active Substance: PREDNISONE ACETATE
     Indication: Product used for unknown indication
     Dosage: 5 MG, QD
  13. SPIRIVA [Suspect]
     Active Substance: TIOTROPIUM BROMIDE MONOHYDRATE
     Indication: Product used for unknown indication
     Dosage: 2 DF, QD
  14. SPIRIVA [Suspect]
     Active Substance: TIOTROPIUM BROMIDE MONOHYDRATE
     Dosage: 1 DF, QD
  15. PANTOPRAZOLE MAGNESIUM [Suspect]
     Active Substance: PANTOPRAZOLE MAGNESIUM
     Indication: Product used for unknown indication
     Dosage: 40 MG, QD
  16. TELMISARTAN [Suspect]
     Active Substance: TELMISARTAN
     Indication: Product used for unknown indication
     Dosage: 80 MG, QD
  17. ZOPICLONE [Suspect]
     Active Substance: ZOPICLONE
     Indication: Product used for unknown indication
  18. NUCALA [Concomitant]
     Active Substance: MEPOLIZUMAB
     Indication: Product used for unknown indication

REACTIONS (19)
  - Asthma [Unknown]
  - Bronchiolitis [Unknown]
  - Carcinoid tumour pulmonary [Unknown]
  - Diarrhoea [Unknown]
  - Disease recurrence [Unknown]
  - Full blood count abnormal [Unknown]
  - Dyspnoea [Unknown]
  - Hypoxia [Unknown]
  - Loss of personal independence in daily activities [Unknown]
  - Menopausal symptoms [Unknown]
  - Oxygen saturation decreased [Unknown]
  - Peripheral swelling [Unknown]
  - Musculoskeletal discomfort [Unknown]
  - Productive cough [Unknown]
  - Sleep disorder due to a general medical condition [Unknown]
  - Sputum discoloured [Unknown]
  - Systemic lupus erythematosus [Unknown]
  - Wheezing [Unknown]
  - Therapeutic product effect incomplete [Unknown]
